FAERS Safety Report 25864738 (Version 3)
Quarter: 2025Q4

REPORT INFORMATION
  Report Type: Spontaneous
  Country: AR (occurrence: AR)
  Receive Date: 20250930
  Receipt Date: 20251210
  Transmission Date: 20260117
  Serious: Yes (Life-Threatening, Other)
  Sender: MIRUM PHARMACEUTICALS
  Company Number: AR-MIRUM PHARMACEUTICALS, INC.-AR-MIR-25-00698

PATIENT

DRUGS (1)
  1. LIVMARLI [Suspect]
     Active Substance: MARALIXIBAT CHLORIDE
     Indication: Alagille syndrome
     Dosage: 380 MICROGRAM, QD
     Route: 048
     Dates: start: 20240201, end: 20250901

REACTIONS (2)
  - Hepatic cirrhosis [Unknown]
  - Liver transplant [Unknown]

NARRATIVE: CASE EVENT DATE: 20250909
